FAERS Safety Report 6897890-X (Version None)
Quarter: 2010Q3

REPORT INFORMATION
  Report Type: 
  Country: None (occurrence: None)
  Receive Date: 20100802
  Receipt Date: 20070809
  Transmission Date: 20110219
  Serious: No
  Sender: FDA-Public Use
  Company Number: US-PFIZER INC-2007067281

PATIENT
  Sex: Female
  Weight: 52.272 kg

DRUGS (3)
  1. LYRICA [Suspect]
     Indication: INTERVERTEBRAL DISC PROTRUSION
     Dates: start: 20070601
  2. SYNTHROID [Concomitant]
  3. VITAMINS [Concomitant]

REACTIONS (10)
  - APHTHOUS STOMATITIS [None]
  - DECREASED APPETITE [None]
  - DIPLOPIA [None]
  - DYSGEUSIA [None]
  - EYE DISORDER [None]
  - GAIT DISTURBANCE [None]
  - MEMORY IMPAIRMENT [None]
  - VISION BLURRED [None]
  - VISUAL IMPAIRMENT [None]
  - WEIGHT INCREASED [None]
